FAERS Safety Report 5086010-2 (Version None)
Quarter: 2006Q3

REPORT INFORMATION
  Report Type: 
  Country: None (occurrence: None)
  Receive Date: 20060817
  Receipt Date: 20051130
  Transmission Date: 20061208
  Serious: Yes (Hospitalization)
  Sender: FDA-Public Use
  Company Number: 2005162928

PATIENT
  Age: 3 Month
  Sex: Female

DRUGS (2)
  1. PHENYTOIN SODIUM [Suspect]
     Indication: EPILEPSY
     Dosage: (35 MG) INTRAVENOUS
     Route: 042
     Dates: start: 20051014, end: 20051014
  2. PHENYTOIN SODIUM [Suspect]
     Indication: STATUS EPILEPTICUS
     Dosage: (35 MG) INTRAVENOUS
     Route: 042
     Dates: start: 20051014, end: 20051014

REACTIONS (6)
  - ANTICONVULSANT DRUG LEVEL DECREASED [None]
  - EXTRAVASATION [None]
  - FLUSHING [None]
  - INJECTION SITE ERYTHEMA [None]
  - INJECTION SITE SWELLING [None]
  - MEDICATION ERROR [None]
